FAERS Safety Report 5228957-X (Version None)
Quarter: 2007Q1

REPORT INFORMATION
  Report Type: 
  Country: None (occurrence: None)
  Receive Date: 20061201
  Receipt Date: 20061005
  Transmission Date: 20070707
  Serious: No
  Sender: FDA-Public Use
  Company Number: US200610001235

PATIENT
  Age: 67 Year
  Sex: Female

DRUGS (6)
  1. CYMBALTA [Suspect]
     Dosage: 30 MG, ORAL
     Route: 048
     Dates: start: 20061004, end: 20061004
  2. PAXIL [Concomitant]
  3. FLEXERIL [Concomitant]
  4. AMBIEN [Concomitant]
  5. VITAMINS [Concomitant]
  6. NEXIUM/UNK/(ESOMEPRAZOLE) [Concomitant]

REACTIONS (8)
  - ABDOMINAL PAIN UPPER [None]
  - ANXIETY [None]
  - DYSPEPSIA [None]
  - DYSPNOEA [None]
  - GASTROINTESTINAL PAIN [None]
  - HEART RATE INCREASED [None]
  - PHARYNGEAL OEDEMA [None]
  - SLEEP DISORDER [None]
